FAERS Safety Report 23730078 (Version 1)
Quarter: 2024Q2

REPORT INFORMATION
  Report Type: Spontaneous
  Country: US (occurrence: US)
  Receive Date: 20240411
  Receipt Date: 20240411
  Transmission Date: 20240716
  Serious: No
  Sender: FDA-Public Use
  Company Number: US-TAKEDA-2024TUS033022

PATIENT
  Sex: Female

DRUGS (10)
  1. DEXILANT [Suspect]
     Active Substance: DEXLANSOPRAZOLE
     Indication: Product used for unknown indication
     Dosage: UNK
     Route: 065
  2. PENICILLIN [Concomitant]
     Active Substance: PENICILLIN
     Dosage: UNK
  3. DOXYCYCLINE [Concomitant]
     Active Substance: DOXYCYCLINE
     Dosage: UNK
  4. DOXEPIN [Concomitant]
     Active Substance: DOXEPIN
     Dosage: UNK
  5. CODEINE [Concomitant]
     Active Substance: CODEINE
     Dosage: UNK
  6. PERCOCET [Concomitant]
     Active Substance: ACETAMINOPHEN\OXYCODONE HYDROCHLORIDE
     Dosage: UNK
  7. VICODIN [Concomitant]
     Active Substance: ACETAMINOPHEN\HYDROCODONE BITARTRATE
     Dosage: UNK
  8. OMNICEF [Concomitant]
     Active Substance: CEFDINIR
     Dosage: UNK
  9. ASPIRIN [Concomitant]
     Active Substance: ASPIRIN
     Dosage: UNK
  10. SINGULAIR [Concomitant]
     Active Substance: MONTELUKAST SODIUM
     Dosage: UNK

REACTIONS (3)
  - Presyncope [Unknown]
  - Vertigo [Unknown]
  - Vomiting [Unknown]
